FAERS Safety Report 7949007 (Version 4)
Quarter: 2016Q4

REPORT INFORMATION
  Report Type: Report from Study
  Country: CH (occurrence: CH)
  Receive Date: 20110517
  Receipt Date: 20161201
  Transmission Date: 20170207
  Serious: Yes (Hospitalization)
  Sender: FDA-Public Use
  Company Number: PHHO2011CH07653

PATIENT
  Sex: Male

DRUGS (6)
  1. RAD001C [Suspect]
     Active Substance: EVEROLIMUS
     Dosage: 5 MG
     Route: 048
     Dates: start: 20110422
  2. NO TREATMENT RECEIVED [Suspect]
     Active Substance: UNSPECIFIED INGREDIENT
     Indication: HEPATIC CANCER
     Dosage: NO TREATMENT
     Route: 065
  3. RAD001C [Suspect]
     Active Substance: EVEROLIMUS
     Indication: HEPATIC CANCER
     Dosage: 5 MG
     Route: 048
     Dates: start: 20101129, end: 20110407
  4. DOXORUBICIN [Concomitant]
     Active Substance: DOXORUBICIN
     Indication: HEPATIC CANCER
     Dosage: 150 MG, DAILY
     Route: 048
     Dates: start: 20101206, end: 20110215
  5. NO TREATMENT RECEIVED [Suspect]
     Active Substance: UNSPECIFIED INGREDIENT
     Dosage: NO TREATMENT
     Route: 065
  6. ZOLPIDEM [Suspect]
     Active Substance: ZOLPIDEM\ZOLPIDEM TARTRATE

REACTIONS (3)
  - Asthenia [Recovering/Resolving]
  - Depression [Recovering/Resolving]
  - Fatigue [Recovering/Resolving]

NARRATIVE: CASE EVENT DATE: 20110407
